FAERS Safety Report 4840320-X (Version None)
Quarter: 2005Q4

REPORT INFORMATION
  Report Type: 
  Country: None (occurrence: None)
  Receive Date: 20051031
  Receipt Date: 20050627
  Transmission Date: 20060501
  Serious: No
  Sender: FDA-Public Use
  Company Number: 200515435US

PATIENT
  Age: 32 Year
  Sex: Male

DRUGS (4)
  1. KETEK [Suspect]
     Indication: PRODUCTIVE COUGH
     Dosage: 800 MG ONCE PO
     Route: 048
     Dates: start: 20050621, end: 20050621
  2. LORATADINE (CLARITIN) [Concomitant]
  3. ORAL CONTRACEPTIVE NOS [Concomitant]
  4. MULTI-VITAMIN [Concomitant]

REACTIONS (3)
  - DIPLOPIA [None]
  - VISION BLURRED [None]
  - VISUAL DISTURBANCE [None]
